FAERS Safety Report 5052927-8 (Version None)
Quarter: 2006Q3

REPORT INFORMATION
  Report Type: 
  Country: None (occurrence: None)
  Receive Date: 20060712
  Receipt Date: 20060627
  Transmission Date: 20061208
  Serious: Yes (Death)
  Sender: FDA-Public Use
  Company Number: 2006-136

PATIENT
  Age: 19 Month
  Sex: Female

DRUGS (2)
  1. CARBOPLATIN [Suspect]
     Indication: BRAIN NEOPLASM MALIGNANT
     Dosage: 400 MG/M2
  2. LOMUSTINE [Suspect]
     Indication: BRAIN NEOPLASM MALIGNANT
     Dosage: 75 MG/M2

REACTIONS (28)
  - ABDOMINAL DISTENSION [None]
  - ACTIVATED PARTIAL THROMBOPLASTIN TIME PROLONGED [None]
  - ANTITHROMBIN III DECREASED [None]
  - ANURIA [None]
  - BLOOD ALBUMIN DECREASED [None]
  - BLOOD FIBRINOGEN INCREASED [None]
  - COAGULOPATHY [None]
  - COUGH [None]
  - DIARRHOEA [None]
  - HAEMOGLOBIN DECREASED [None]
  - HEPATIC VEIN THROMBOSIS [None]
  - HEPATOMEGALY [None]
  - IRRITABILITY [None]
  - LUNG INFILTRATION [None]
  - LYMPHOCYTE COUNT INCREASED [None]
  - MONOCYTE PERCENTAGE DECREASED [None]
  - MUCOSAL HAEMORRHAGE [None]
  - MUCOSAL ULCERATION [None]
  - OEDEMA PERIPHERAL [None]
  - PROTEIN C DECREASED [None]
  - PROTEIN S DECREASED [None]
  - PROTEIN TOTAL DECREASED [None]
  - PROTHROMBIN TIME PROLONGED [None]
  - PYREXIA [None]
  - RECTAL HAEMORRHAGE [None]
  - RESPIRATORY DISTRESS [None]
  - WEIGHT INCREASED [None]
  - WHITE BLOOD CELL COUNT DECREASED [None]
